FAERS Safety Report 4582217-9 (Version None)
Quarter: 2005Q1

REPORT INFORMATION
  Report Type: 
  Country: None (occurrence: None)
  Receive Date: 20050214
  Receipt Date: 20050127
  Transmission Date: 20050727
  Serious: Yes (Hospitalization)
  Sender: FDA-Public Use
  Company Number: TRP_0065_2005

PATIENT
  Age: 53 Year
  Sex: Female

DRUGS (6)
  1. RIBASPHERE [Suspect]
     Indication: HEPATITIS C
     Dosage: DF PO
     Route: 048
     Dates: start: 20041206, end: 20041201
  2. PEG-INTRON [Suspect]
     Indication: HEPATITIS C
     Dosage: DF  SC
     Route: 058
     Dates: start: 20041206, end: 20041201
  3. ALBUTEROL [Concomitant]
  4. ACIPHEX [Concomitant]
  5. LASIX [Concomitant]
  6. POTASSIUM CHLORIDE [Concomitant]

REACTIONS (4)
  - COMA [None]
  - DIARRHOEA [None]
  - HAEMORRHAGE [None]
  - PLATELET COUNT DECREASED [None]
